FAERS Safety Report 16164685 (Version 1)
Quarter: 2019Q2

REPORT INFORMATION
  Report Type: Spontaneous
  Country: AT (occurrence: AT)
  Receive Date: 20190405
  Receipt Date: 20190405
  Transmission Date: 20190711
  Serious: Yes (Hospitalization, Other)
  Sender: FDA-Public Use
  Company Number: AT-APOPHARMA USA, INC.-2019AP010614

PATIENT
  Age: 68 Year
  Sex: Female

DRUGS (4)
  1. FOTEMUSTINE [Concomitant]
     Active Substance: FOTEMUSTINE
     Indication: STEM CELL TRANSPLANT
     Route: 065
  2. ETOPOSIDE. [Concomitant]
     Active Substance: ETOPOSIDE
     Indication: STEM CELL TRANSPLANT
     Route: 065
  3. CYTARABINE. [Concomitant]
     Active Substance: CYTARABINE
     Indication: STEM CELL TRANSPLANT
     Route: 065
  4. ALKERAN [Suspect]
     Active Substance: MELPHALAN
     Indication: STEM CELL TRANSPLANT
     Route: 065

REACTIONS (3)
  - Septic shock [Recovered/Resolved]
  - Pharyngeal inflammation [Recovered/Resolved]
  - Cytomegalovirus infection [Recovered/Resolved]
